FAERS Safety Report 6019906-5 (Version None)
Quarter: 2008Q4

REPORT INFORMATION
  Report Type: 
  Country: None (occurrence: None)
  Receive Date: 20081223
  Receipt Date: 20081209
  Transmission Date: 20090506
  Serious: Yes (Death)
  Sender: FDA-Public Use
  Company Number: KV200801041

PATIENT
  Age: 72 Year
  Sex: Male

DRUGS (1)
  1. ISOSORBIDE MONONITRATE [Suspect]
     Indication: CARDIAC DISORDER
     Dosage: 30 MG QD ORAL
     Route: 048
     Dates: start: 20070101, end: 20081001

REACTIONS (2)
  - CARDIAC DISORDER [None]
  - PRODUCT QUALITY ISSUE [None]
